FAERS Safety Report 8287652-3 (Version None)
Quarter: 2012Q2

REPORT INFORMATION
  Report Type: 
  Country: None (occurrence: None)
  Receive Date: 20120416
  Receipt Date: 20120411
  Transmission Date: 20120825
  Serious: Yes (Hospitalization, Other)
  Sender: FDA-Public Use
  Company Number: PHHY2012AU015385

PATIENT
  Sex: Male
  Weight: 120 kg

DRUGS (10)
  1. OLANZAPINE [Concomitant]
     Indication: AGITATION
  2. CLOZARIL [Suspect]
     Indication: SCHIZOPHRENIA
     Dosage: 600 MG, DAILY
     Route: 048
     Dates: start: 20040101, end: 20111101
  3. LORAZEPAM [Concomitant]
  4. PANTOPRAZOLE [Concomitant]
     Dosage: 40 MG, QD
  5. CITALOPRAM [Concomitant]
     Dosage: 20 MG, QD
  6. QUETIAPINE [Concomitant]
     Dosage: 800 MG(500 MG MANE, 300 MG NOCTE)
  7. FLUOXETINE HCL [Concomitant]
     Dosage: 20 MG, UNK
     Dates: start: 20120328
  8. CLOZARIL [Suspect]
     Dosage: 350 MG(50MG MANE AND 300MG NOCTE)
  9. VALPROATE SODIUM [Concomitant]
     Dosage: 600 MG,(500 MG MANE, 100 MG NOCTE
  10. RAMIPRIL [Concomitant]
     Dosage: 1.5 MG,(MANE)

REACTIONS (15)
  - DELUSIONAL DISORDER, UNSPECIFIED TYPE [None]
  - HYPOTENSION [None]
  - ANTIPSYCHOTIC DRUG LEVEL BELOW THERAPEUTIC [None]
  - LEFT VENTRICULAR DYSFUNCTION [None]
  - LYMPHOCYTE COUNT INCREASED [None]
  - ELECTROCARDIOGRAM QT PROLONGED [None]
  - HALLUCINATION, AUDITORY [None]
  - MONOCYTE COUNT INCREASED [None]
  - BLOOD CHLORIDE INCREASED [None]
  - CARDIAC DISORDER [None]
  - CARDIOMYOPATHY [None]
  - BUNDLE BRANCH BLOCK LEFT [None]
  - THINKING ABNORMAL [None]
  - BLOOD MAGNESIUM INCREASED [None]
  - GAMMA-GLUTAMYLTRANSFERASE INCREASED [None]
